FAERS Safety Report 9177850 (Version 2)
Quarter: 2013Q2

REPORT INFORMATION
  Report Type: Spontaneous
  Country: US (occurrence: US)
  Receive Date: 20130321
  Receipt Date: 20130426
  Transmission Date: 20140414
  Serious: Yes (Hospitalization)
  Sender: FDA-Public Use
  Company Number: US-UCBSA-080995

PATIENT
  Age: 35 Year
  Sex: Female

DRUGS (7)
  1. NEUPRO [Suspect]
     Indication: RESTLESS LEGS SYNDROME
     Dosage: DAILY DOSE: 4 MG
     Route: 062
     Dates: start: 201209
  2. PERCOCET [Suspect]
     Indication: PAIN
     Dosage: 5/325 MG; 1-2 TABLETS, QID PRN
     Route: 048
  3. OXYCODONE [Concomitant]
     Indication: PAIN
     Dosage: 5 MG/10 MG EVERY FOUR HOURS PRN
     Route: 048
  4. CLONOPIN [Concomitant]
     Dosage: AT BEDTIME
  5. AMBIEN CR [Concomitant]
     Dosage: AT BEDTIME
  6. FENTANYL [Concomitant]
     Indication: PAIN
     Dosage: UNKNOWN DOSE
  7. VICODIN [Concomitant]
     Indication: PAIN
     Dosage: UNKNOWN DOSE

REACTIONS (3)
  - Toxicity to various agents [Recovered/Resolved]
  - Vision blurred [Recovered/Resolved]
  - Loss of consciousness [Recovered/Resolved]
